FAERS Safety Report 8942118 (Version 2)
Quarter: 2012Q4

REPORT INFORMATION
  Report Type: 
  Country: FR (occurrence: FR)
  Receive Date: 20121130
  Receipt Date: 20121210
  Transmission Date: 20130627
  Serious: Yes (Hospitalization)
  Sender: FDA-Public Use
  Company Number: FR-GLAXOSMITHKLINE-B0847156A

PATIENT
  Age: 56 Year
  Sex: Female
  Weight: 66 kg

DRUGS (12)
  1. ARIXTRA [Suspect]
     Indication: THROMBOSIS PROPHYLAXIS
     Dosage: 2.5MG Per day
     Route: 058
     Dates: start: 20120829, end: 20121120
  2. KARDEGIC [Suspect]
     Indication: PROPHYLAXIS
     Dosage: 160MG Per day
     Route: 048
     Dates: start: 20120829
  3. FORLAX [Concomitant]
  4. LYRICA [Concomitant]
     Indication: NEURALGIA
     Dosage: 300MG per day
     Route: 048
     Dates: start: 20121105
  5. TARDYFERON [Concomitant]
  6. TOPALGIC (FRANCE) [Concomitant]
  7. INEXIUM [Concomitant]
     Dosage: 20MG Per day
     Route: 048
     Dates: start: 20120829
  8. DOLIPRANE [Concomitant]
  9. TAHOR [Concomitant]
     Indication: DYSLIPIDAEMIA
     Dosage: 40MG Per day
     Route: 048
     Dates: start: 20120829
  10. PENTASA [Concomitant]
     Indication: CROHN^S DISEASE
     Dosage: 500MG Twice per day
     Route: 048
     Dates: start: 20120829
  11. NIQUITIN [Concomitant]
     Indication: EX-TOBACCO USER
  12. NICOPATCH [Concomitant]
     Indication: EX-TOBACCO USER
     Dosage: 21MG Per day
     Route: 062
     Dates: start: 20120829

REACTIONS (5)
  - Muscle haemorrhage [Not Recovered/Not Resolved]
  - Anaemia [Not Recovered/Not Resolved]
  - Tachycardia [Recovering/Resolving]
  - Hypotension [Recovering/Resolving]
  - Incorrect drug administration duration [Unknown]
